FAERS Safety Report 20955018 (Version 1)
Quarter: 2022Q2

REPORT INFORMATION
  Report Type: Spontaneous
  Country: DE (occurrence: DE)
  Receive Date: 20220614
  Receipt Date: 20220614
  Transmission Date: 20220721
  Serious: Yes (Other)
  Sender: FDA-Public Use
  Company Number: DE-ALKEM LABORATORIES LIMITED-DE-ALKEM-2022-01767

PATIENT
  Age: 79 Year
  Sex: Female
  Weight: 56 kg

DRUGS (1)
  1. SOLIFENACIN [Suspect]
     Active Substance: SOLIFENACIN
     Indication: Pollakiuria
     Dosage: 10 MILLIGRAM, EVERY 1 DAY
     Route: 065
     Dates: start: 202002, end: 202102

REACTIONS (2)
  - Confusional state [Recovering/Resolving]
  - Dry mouth [Recovering/Resolving]

NARRATIVE: CASE EVENT DATE: 20200201
